FAERS Safety Report 9104729 (Version 1)
Quarter: 2013Q1

REPORT INFORMATION
  Report Type: Spontaneous
  Country: IE (occurrence: IE)
  Receive Date: 20130219
  Receipt Date: 20130219
  Transmission Date: 20140127
  Serious: Yes (Hospitalization)
  Sender: FDA-Public Use
  Company Number: IE-ASTRAZENECA-2013SE09993

PATIENT
  Sex: Male

DRUGS (9)
  1. SYNAGIS [Suspect]
     Indication: HEART DISEASE CONGENITAL
     Route: 030
     Dates: start: 20121113
  2. CAPTOPRIL [Concomitant]
  3. LOSEC [Concomitant]
  4. SILDENAFIL [Concomitant]
  5. ASPIRIN [Concomitant]
  6. PENICILLIN PROPHYLAXIS [Concomitant]
  7. FUROSEMIDE [Concomitant]
  8. BOSENTEN [Concomitant]
  9. SPIRONOLACTONE [Concomitant]

REACTIONS (4)
  - Hypophagia [Unknown]
  - Influenza like illness [Unknown]
  - Pyrexia [Unknown]
  - Vomiting [Unknown]
